FAERS Safety Report 7613954 (Version 4)
Quarter: 2016Q1

REPORT INFORMATION
  Report Type: Report from Study
  Country: SE (occurrence: SE)
  Receive Date: 20101001
  Receipt Date: 20160328
  Transmission Date: 20160526
  Serious: Yes (Hospitalization, Other)
  Sender: FDA-Public Use
  Company Number: SE-JNJFOC-20100906945

PATIENT
  Age: 31 Year
  Sex: Female
  Weight: 50 kg

DRUGS (3)
  1. OXYCODONE [Concomitant]
     Active Substance: OXYCODONE
     Indication: PAIN
     Route: 048
     Dates: start: 20100513, end: 20100526
  2. FLUCLOXACILLIN [Concomitant]
     Active Substance: FLUCLOXACILLIN
     Indication: INFECTION
     Dosage: FREQUENCY 3
     Route: 048
     Dates: start: 20100521, end: 20100615
  3. REMICADE [Suspect]
     Active Substance: INFLIXIMAB
     Indication: COLITIS ULCERATIVE
     Route: 042
     Dates: start: 20080930, end: 20081024

REACTIONS (3)
  - Colitis ulcerative [Recovered/Resolved]
  - Colectomy [Unknown]
  - Postoperative abscess [Recovered/Resolved]

NARRATIVE: CASE EVENT DATE: 2009
